FAERS Safety Report 5761013-0 (Version None)
Quarter: 2008Q2

REPORT INFORMATION
  Report Type: 
  Country: None (occurrence: None)
  Receive Date: 20080606
  Receipt Date: 20071218
  Transmission Date: 20081010
  Serious: No
  Sender: FDA-Public Use
  Company Number: US-ASTRAZENECA-2007UW28673

PATIENT
  Age: 59 Year
  Sex: Male

DRUGS (7)
  1. PRILOSEC [Suspect]
  2. HYDROCODONE [Concomitant]
     Dosage: 7.5/750
     Route: 048
  3. DILTIAZEM [Concomitant]
     Route: 048
  4. SYNTHROID [Concomitant]
     Route: 048
  5. FUROSEMIDE [Concomitant]
     Dosage: BID PRN ONLY
     Route: 048
  6. COLCHICINE [Concomitant]
     Route: 048
  7. ALLOPURINOL [Concomitant]
     Route: 048

REACTIONS (4)
  - FEELING JITTERY [None]
  - GASTROOESOPHAGEAL REFLUX DISEASE [None]
  - OESOPHAGITIS [None]
  - WEIGHT INCREASED [None]
